FAERS Safety Report 10586015 (Version 2)
Quarter: 2014Q4

REPORT INFORMATION
  Report Type: Spontaneous
  Country: KE (occurrence: KE)
  Receive Date: 20141115
  Receipt Date: 20141128
  Transmission Date: 20150529
  Serious: Yes (Hospitalization, Other)
  Sender: FDA-Public Use
  Company Number: KE-ASTRAZENECA-2014SE85408

PATIENT
  Age: 32 Year
  Sex: Male

DRUGS (7)
  1. MERONEM [Suspect]
     Active Substance: MEROPENEM
     Indication: STAPHYLOCOCCAL INFECTION
     Route: 042
  2. MERONEM [Suspect]
     Active Substance: MEROPENEM
     Indication: SEPSIS
     Route: 042
     Dates: start: 20141031, end: 20141105
  3. IONOTROPES [Concomitant]
  4. MERONEM [Suspect]
     Active Substance: MEROPENEM
     Indication: STAPHYLOCOCCAL INFECTION
     Route: 042
     Dates: start: 20141031, end: 20141105
  5. STEROID TREATMENT [Concomitant]
  6. MERONEM [Suspect]
     Active Substance: MEROPENEM
     Indication: SEPSIS
     Route: 042
  7. TIGECYCLINE [Concomitant]
     Active Substance: TIGECYCLINE
     Indication: SEPSIS
     Route: 042
     Dates: start: 20141102

REACTIONS (2)
  - Partial seizures [Recovered/Resolved]
  - Seizure [Recovered/Resolved]

NARRATIVE: CASE EVENT DATE: 20141105
